FAERS Safety Report 13491575 (Version 1)
Quarter: 2017Q2

REPORT INFORMATION
  Report Type: Spontaneous
  Country: US (occurrence: US)
  Receive Date: 20170427
  Receipt Date: 20170427
  Transmission Date: 20170830
  Serious: Yes (Other)
  Sender: FDA-Public Use
  Company Number: US-PFIZER INC-2016585943

PATIENT
  Sex: Female

DRUGS (1)
  1. METHOTREXATE SODIUM. [Suspect]
     Active Substance: METHOTREXATE SODIUM
     Indication: PLACENTA ACCRETA
     Dosage: UNK, WEEKLY

REACTIONS (4)
  - Haematuria [Recovered/Resolved]
  - Drug ineffective for unapproved indication [Unknown]
  - Vaginal haemorrhage [Recovered/Resolved]
  - Coagulopathy [Recovered/Resolved]
